FAERS Safety Report 9893690 (Version 2)
Quarter: 2014Q1

REPORT INFORMATION
  Report Type: Spontaneous
  Country: IT (occurrence: IT)
  Receive Date: 20140213
  Receipt Date: 20140219
  Transmission Date: 20141002
  Serious: Yes (Death, Hospitalization)
  Sender: FDA-Public Use
  Company Number: IT-TEVA-462095ISR

PATIENT
  Age: 65 Year
  Sex: Female

DRUGS (3)
  1. FLUDARABINE [Suspect]
     Indication: NON-HODGKIN^S LYMPHOMA
     Dosage: 6 CYCLES RECEIVED
     Route: 065
  2. CYCLOPHOSPHAMIDE [Suspect]
     Indication: NON-HODGKIN^S LYMPHOMA
     Dosage: 6 CYCLES RECEIVED
     Route: 065
  3. RITUXIMAB [Suspect]
     Indication: NON-HODGKIN^S LYMPHOMA
     Dosage: 6 CYCLES RECEIVED
     Route: 065

REACTIONS (14)
  - Death [Fatal]
  - Progressive multifocal leukoencephalopathy [Unknown]
  - Pyrexia [Unknown]
  - Pneumonia [Recovered/Resolved]
  - Neutropenia [Recovered/Resolved]
  - Hypoacusis [Unknown]
  - Balance disorder [Unknown]
  - Optic atrophy [Unknown]
  - Neurological symptom [Unknown]
  - Condition aggravated [Unknown]
  - Herpes ophthalmic [Unknown]
  - Erysipelas [Unknown]
  - Clostridium difficile colitis [Unknown]
  - Gliosis [Unknown]
